FAERS Safety Report 8708023 (Version 3)
Quarter: 2014Q3

REPORT INFORMATION
  Report Type: Report from Study
  Country: JP (occurrence: JP)
  Receive Date: 20120806
  Receipt Date: 20140811
  Transmission Date: 20150326
  Serious: Yes (Hospitalization, Other)
  Sender: FDA-Public Use
  Company Number: JP-SHIRE-SPV1-2010-00368

PATIENT
  Age: 64 Year
  Sex: Male

DRUGS (20)
  1. OXAROL [Concomitant]
     Active Substance: MAXACALCITOL
     Indication: PRODUCT USED FOR UNKNOWN INDICATION
     Dosage: 10 ?G, 1X/WEEK
     Route: 042
     Dates: start: 20090914, end: 20091025
  2. OXAROL [Concomitant]
     Active Substance: MAXACALCITOL
     Dosage: 15 ?G, 1X/WEEK
     Route: 042
     Dates: start: 20091026, end: 20100228
  3. OXAROL [Concomitant]
     Active Substance: MAXACALCITOL
     Dosage: 10 ?G, 1X/WEEK
     Route: 042
     Dates: start: 20100809, end: 20110131
  4. OXAROL [Concomitant]
     Active Substance: MAXACALCITOL
     Dosage: 7.5 ?G, 1X/WEEK
     Route: 042
     Dates: start: 20120201
  5. 405 (LANTHANUM CARBONATE) [Suspect]
     Active Substance: LANTHANUM CARBONATE
     Indication: HYPERPHOSPHATAEMIA
     Dosage: 1500 MG, 1X/DAY:QD
     Route: 048
     Dates: start: 20130325
  6. OXAROL [Concomitant]
     Active Substance: MAXACALCITOL
     Dosage: 12.5 ?G, 1X/WEEK
     Route: 042
     Dates: start: 20100717, end: 20100808
  7. 405 (LANTHANUM CARBONATE) [Suspect]
     Active Substance: LANTHANUM CARBONATE
     Dosage: 1500 MG, UNKNOWN
     Route: 048
     Dates: start: 20100426, end: 20130324
  8. CALTAN [Concomitant]
     Active Substance: CALCIUM CARBONATE
     Indication: HYPERPHOSPHATAEMIA
     Dosage: 3000 MG, UNKNOWN
     Route: 048
     Dates: start: 20090807
  9. ROCALTROL [Concomitant]
     Active Substance: CALCITRIOL
     Indication: PRODUCT USED FOR UNKNOWN INDICATION
     Dosage: 0.25 ?G, UNKNOWN
     Route: 048
     Dates: end: 20090914
  10. OXAROL [Concomitant]
     Active Substance: MAXACALCITOL
     Dosage: 7.5 ?G, 1X/WEEK
     Route: 042
     Dates: start: 20110201, end: 20110531
  11. REGPARA [Concomitant]
     Active Substance: CINACALCET HYDROCHLORIDE
     Dosage: 50 MG, UNKNOWN
     Route: 048
     Dates: start: 20131217
  12. OXAROL [Concomitant]
     Active Substance: MAXACALCITOL
     Dosage: 15 ?G, 1X/WEEK
     Route: 042
     Dates: start: 20100301, end: 20100312
  13. OXAROL [Concomitant]
     Active Substance: MAXACALCITOL
     Dosage: 15 ?G, 1X/WEEK
     Route: 042
     Dates: start: 20100315, end: 20100331
  14. OXAROL [Concomitant]
     Active Substance: MAXACALCITOL
     Dosage: 15 ?G, 1X/WEEK
     Route: 042
     Dates: start: 20100401
  15. OXAROL [Concomitant]
     Active Substance: MAXACALCITOL
     Dosage: 5 ?G, 1X/WEEK
     Route: 042
     Dates: start: 20110601, end: 20120131
  16. AMLODIPINE [Concomitant]
     Active Substance: AMLODIPINE BESYLATE
     Indication: PRODUCT USED FOR UNKNOWN INDICATION
     Dosage: 5 MG, UNKNOWN
     Route: 048
  17. REGPARA [Concomitant]
     Active Substance: CINACALCET HYDROCHLORIDE
     Indication: HYPERPARATHYROIDISM SECONDARY
     Dosage: 25 MG, UNKNOWN
     Route: 048
     Dates: start: 20120807, end: 20131216
  18. 405 (LANTHANUM CARBONATE) [Suspect]
     Active Substance: LANTHANUM CARBONATE
     Indication: HYPERPHOSPHATAEMIA
     Dosage: 750 MG, OTHER (IMMEDIATELY AFTER MEALS)
     Route: 048
     Dates: start: 20090612, end: 20100425
  19. BAYASPIRIN [Concomitant]
     Active Substance: ASPIRIN
     Indication: PROPHYLAXIS
     Dosage: 100 MG, UNKNOWN
     Route: 048
  20. EPOGIN [Concomitant]
     Indication: PRODUCT USED FOR UNKNOWN INDICATION
     Dosage: 7500 IU, UNKNOWN
     Route: 042

REACTIONS (8)
  - Condition aggravated [Recovered/Resolved]
  - Gastric ulcer [Recovering/Resolving]
  - Arthralgia [Unknown]
  - Shunt malfunction [Recovering/Resolving]
  - Peripheral arterial occlusive disease [Recovered/Resolved]
  - Osteoarthritis [Recovered/Resolved]
  - Angina pectoris [Recovering/Resolving]
  - Large intestinal ulcer [Recovered/Resolved]

NARRATIVE: CASE EVENT DATE: 20090812
